FAERS Safety Report 22594563 (Version 2)
Quarter: 2023Q2

REPORT INFORMATION
  Report Type: Spontaneous
  Country: AR (occurrence: AR)
  Receive Date: 20230613
  Receipt Date: 20230626
  Transmission Date: 20230722
  Serious: No
  Sender: FDA-Public Use
  Company Number: AR-PFIZER INC-PV202300101601

PATIENT
  Age: 80 Year
  Sex: Female

DRUGS (1)
  1. ABRILADA [Suspect]
     Active Substance: ADALIMUMAB-AFZB
     Indication: Psoriasis
     Dosage: UNK, EVERY 15 DAYS
     Dates: end: 20230605

REACTIONS (2)
  - Drug dose omission by device [Unknown]
  - Device malfunction [Unknown]
